FAERS Safety Report 9381462 (Version 1)
Quarter: 2013Q3

REPORT INFORMATION
  Report Type: Spontaneous
  Country: AU (occurrence: AU)
  Receive Date: 20130703
  Receipt Date: 20130703
  Transmission Date: 20140515
  Serious: Yes (Other)
  Sender: FDA-Public Use
  Company Number: PHHY2013AU066943

PATIENT
  Age: 77 Year
  Sex: Male

DRUGS (7)
  1. CICLOSPORIN [Suspect]
     Indication: RENAL TRANSPLANT
  2. ALENDRONATE [Concomitant]
     Indication: OSTEOPOROSIS
     Dosage: 70 MG, WEEKLY
  3. ALLOPURINOL [Concomitant]
     Dosage: 300 MG, UNK
  4. ASPIRIN [Concomitant]
     Dosage: 100 MG, UNK
  5. SIMVASTATIN [Concomitant]
     Dosage: 40 MG, UNK
  6. PREDNISOLONE [Concomitant]
     Dosage: 10 MG, UNK
  7. TACROLIMUS [Concomitant]
     Dosage: 2 MG, UNK

REACTIONS (2)
  - Gouty tophus [Unknown]
  - Concomitant disease aggravated [Unknown]
